FAERS Safety Report 9114276 (Version 1)
Quarter: 2013Q1

REPORT INFORMATION
  Report Type: Spontaneous
  Country: US (occurrence: US)
  Receive Date: 20130208
  Receipt Date: 20130208
  Transmission Date: 20140127
  Serious: Yes (Other)
  Sender: FDA-Public Use
  Company Number: CHPA2013US001752

PATIENT
  Age: 56 Year
  Sex: Male

DRUGS (1)
  1. EXCEDRIN EXTRA STRENGTH [Suspect]
     Indication: ARTHRITIS
     Dosage: 1 DF, PRN
     Route: 048
     Dates: end: 2012

REACTIONS (4)
  - Prostatic specific antigen increased [Unknown]
  - Therapeutic response unexpected [Unknown]
  - Underdose [Unknown]
  - Incorrect drug administration duration [Unknown]
